FAERS Safety Report 21406983 (Version 3)
Quarter: 2023Q1

REPORT INFORMATION
  Report Type: Other
  Country: US (occurrence: None)
  Receive Date: 20221004
  Receipt Date: 20230312
  Transmission Date: 20230417
  Serious: Yes (Other)
  Sender: FDA-Public Use
  Company Number: US-ROCHE-3184467

PATIENT
  Age: 55 Year
  Sex: Female
  Weight: 114.86 kg

DRUGS (18)
  1. OCREVUS [Suspect]
     Active Substance: OCRELIZUMAB
     Indication: Relapsing multiple sclerosis
     Dosage: YES
     Route: 042
     Dates: start: 202009
  2. OCREVUS [Suspect]
     Active Substance: OCRELIZUMAB
     Route: 065
     Dates: start: 20220829
  3. TOPAMAX [Suspect]
     Active Substance: TOPIRAMATE
     Indication: Migraine
     Route: 048
  4. BOTOX [Concomitant]
     Active Substance: ONABOTULINUMTOXINA
     Indication: Migraine
     Route: 058
     Dates: start: 202110
  5. MODAFINIL [Concomitant]
     Active Substance: MODAFINIL
     Indication: Narcolepsy
     Route: 048
     Dates: start: 202206
  6. MELATONIN [Concomitant]
     Active Substance: MELATONIN
     Route: 048
     Dates: start: 202206
  7. BACLOFEN [Concomitant]
     Active Substance: BACLOFEN
     Indication: Muscle spasms
  8. MOTEGRITY [Concomitant]
     Active Substance: PRUCALOPRIDE SUCCINATE
     Route: 048
  9. COLACE [Concomitant]
     Active Substance: DOCUSATE SODIUM
  10. ATORVASTATIN [Concomitant]
     Active Substance: ATORVASTATIN
     Indication: Blood cholesterol
     Route: 048
  11. LOSARTAN [Concomitant]
     Active Substance: LOSARTAN
     Indication: Blood pressure measurement
     Route: 048
  12. FAMOTIDINE [Concomitant]
     Active Substance: FAMOTIDINE
     Route: 048
  13. CITALOPRAM [Concomitant]
     Active Substance: CITALOPRAM HYDROBROMIDE
     Indication: Anxiety
     Route: 048
  14. CITALOPRAM [Concomitant]
     Active Substance: CITALOPRAM HYDROBROMIDE
     Indication: Depression
  15. D-MANNOSE [Concomitant]
     Route: 048
  16. ALBUTEROL [Concomitant]
     Active Substance: ALBUTEROL
     Indication: Cough
  17. ALBUTEROL [Concomitant]
     Active Substance: ALBUTEROL
     Indication: Dyspnoea
  18. XANAX [Concomitant]
     Active Substance: ALPRAZOLAM
     Route: 048

REACTIONS (21)
  - Burning sensation [Not Recovered/Not Resolved]
  - Dyspnoea [Recovered/Resolved]
  - Anal incontinence [Unknown]
  - Urinary incontinence [Recovered/Resolved]
  - Muscle spasms [Recovered/Resolved]
  - COVID-19 [Unknown]
  - Weight decreased [Not Recovered/Not Resolved]
  - Muscular weakness [Unknown]
  - Lethargy [Not Recovered/Not Resolved]
  - Visual acuity reduced [Unknown]
  - Cough [Not Recovered/Not Resolved]
  - Multiple sclerosis [Unknown]
  - Drug ineffective [Unknown]
  - Abdominal discomfort [Not Recovered/Not Resolved]
  - Migraine [Unknown]
  - Hypersomnia [Unknown]
  - Bladder spasm [Not Recovered/Not Resolved]
  - Muscle tightness [Recovered/Resolved]
  - Chemical burn [Recovered/Resolved]
  - Dysgeusia [Not Recovered/Not Resolved]
  - Parosmia [Not Recovered/Not Resolved]

NARRATIVE: CASE EVENT DATE: 20220830
